FAERS Safety Report 6661218-0 (Version None)
Quarter: 2010Q1

REPORT INFORMATION
  Report Type: 
  Country: None (occurrence: None)
  Receive Date: 20100331
  Receipt Date: 20100322
  Transmission Date: 20100710
  Serious: Yes (Other)
  Sender: FDA-Public Use
  Company Number: US-BAXTER-2010BH007873

PATIENT
  Age: 38 Year
  Sex: Female
  Weight: 72 kg

DRUGS (4)
  1. HEPARIN SODIUM INJECTION [Suspect]
     Indication: DIALYSIS
     Route: 040
     Dates: start: 20071012, end: 20080109
  2. HEPARIN SODIUM INJECTION [Suspect]
     Indication: INTRAVENOUS CATHETER MANAGEMENT
     Route: 040
     Dates: start: 20071012, end: 20080109
  3. HEPARIN SODIUM INJECTION [Suspect]
     Route: 042
     Dates: start: 20080109, end: 20080208
  4. HEPARIN SODIUM INJECTION [Suspect]
     Route: 065
     Dates: start: 20071212

REACTIONS (11)
  - AMNESIA [None]
  - ASTHENIA [None]
  - CHEST PAIN [None]
  - CONSCIOUSNESS FLUCTUATING [None]
  - DYSPHAGIA [None]
  - DYSPNOEA [None]
  - FATIGUE [None]
  - NERVOUS SYSTEM DISORDER [None]
  - SWELLING FACE [None]
  - URTICARIA [None]
  - VOMITING [None]
